FAERS Safety Report 16809275 (Version 1)
Quarter: 2019Q4

REPORT INFORMATION
  Report Type: Spontaneous
  Country: US (occurrence: US)
  Receive Date: 20190914
  Receipt Date: 20190914
  Transmission Date: 20200122
  Serious: No
  Sender: FDA-Public Use
  Company Number: None

PATIENT
  Age: 50 Year
  Sex: Female

DRUGS (5)
  1. ZYRTEC [Suspect]
     Active Substance: CETIRIZINE HYDROCHLORIDE
     Indication: MULTIPLE ALLERGIES
  2. CENTRUM SILVER-WOMEN [Concomitant]
  3. CALCIOUM [Concomitant]
  4. BABY ASPIRIN [Concomitant]
     Active Substance: ASPIRIN
  5. BIOTIN HAIR SKIN AND NAILS, [Concomitant]

REACTIONS (3)
  - Dyspareunia [None]
  - Pruritus [None]
  - Vulvovaginal dryness [None]

NARRATIVE: CASE EVENT DATE: 20190913
